FAERS Safety Report 9778189 (Version 2)
Quarter: 2014Q1

REPORT INFORMATION
  Report Type: Spontaneous
  Country: US (occurrence: US)
  Receive Date: 20131223
  Receipt Date: 20140116
  Transmission Date: 20141002
  Serious: Yes (Other)
  Sender: FDA-Public Use
  Company Number: US-JNJFOC-20131209600

PATIENT
  Age: 49 Year
  Sex: Male
  Weight: 88.45 kg

DRUGS (6)
  1. XARELTO [Suspect]
     Indication: THROMBOSIS PROPHYLAXIS
     Dosage: STRENGTH: 15 MG
     Route: 048
     Dates: start: 20131209, end: 20131226
  2. XARELTO [Suspect]
     Indication: THROMBOSIS PROPHYLAXIS
     Dosage: STRENGTH: 20 MG
     Route: 048
     Dates: start: 20130605
  3. XARELTO [Suspect]
     Indication: THROMBOSIS
     Dosage: STRENGTH: 20 MG
     Route: 048
     Dates: start: 20130605
  4. XARELTO [Suspect]
     Indication: THROMBOSIS
     Dosage: STRENGTH: 15 MG
     Route: 048
     Dates: start: 20131209, end: 20131226
  5. FLEXERIL [Concomitant]
     Indication: MUSCLE RELAXANT THERAPY
     Dosage: AS NEEDED
     Route: 048
  6. AIRBORNE [Concomitant]
     Indication: VITAMIN SUPPLEMENTATION
     Route: 065

REACTIONS (1)
  - Thrombosis [Recovering/Resolving]
